FAERS Safety Report 8900508 (Version 1)
Quarter: 2012Q4

REPORT INFORMATION
  Report Type: 
  Country: GB (occurrence: GB)
  Receive Date: 20121109
  Receipt Date: 20121109
  Transmission Date: 20130627
  Serious: Yes (Other)
  Sender: FDA-Public Use
  Company Number: GB-NAPPMUNDI-DEU-2012-0009772

PATIENT
  Age: 43 Year
  Sex: Female

DRUGS (7)
  1. MORPHINE SULFATE [Suspect]
     Indication: ANALGESIC THERAPY
     Dosage: 7.5 mg, single
     Route: 042
  2. DICLOFENAC [Interacting]
     Indication: ANALGESIC THERAPY
     Dosage: 75 mg, see text
     Route: 042
  3. SEVOFLURANE [Interacting]
     Indication: GENERAL ANAESTHESIA
     Dosage: UNK
  4. THIOPENTAL [Interacting]
     Indication: ANAESTHESIA
  5. FENTANYL [Suspect]
     Indication: ANAESTHESIA
  6. CARBAMAZEPINE [Concomitant]
     Indication: EPILEPSY
  7. CLOBAZAM [Concomitant]
     Indication: EPILEPSY

REACTIONS (6)
  - Device interaction [Recovered/Resolved]
  - Device stimulation issue [Recovered/Resolved]
  - Convulsive threshold lowered [Recovered/Resolved]
  - Obstructive airways disorder [Recovered/Resolved]
  - Laryngospasm [Recovered/Resolved]
  - Hypoxia [Recovered/Resolved]
